FAERS Safety Report 6675729-5 (Version None)
Quarter: 2010Q2

REPORT INFORMATION
  Report Type: 
  Country: None (occurrence: None)
  Receive Date: 20100409
  Receipt Date: 20100402
  Transmission Date: 20101027
  Serious: Yes (Death, Other)
  Sender: FDA-Public Use
  Company Number: US-AMGEN-QUU400618

PATIENT
  Sex: Male

DRUGS (3)
  1. NPLATE [Suspect]
     Indication: IDIOPATHIC THROMBOCYTOPENIC PURPURA
     Dates: start: 20090102, end: 20090109
  2. NPLATE [Suspect]
     Indication: ACUTE MYELOID LEUKAEMIA
  3. CAMPATH [Concomitant]

REACTIONS (3)
  - ACUTE MYELOID LEUKAEMIA [None]
  - DRUG INEFFECTIVE [None]
  - MYELODYSPLASTIC SYNDROME TRANSFORMATION [None]
